FAERS Safety Report 6057488-2 (Version None)
Quarter: 2009Q1

REPORT INFORMATION
  Report Type: 
  Country: None (occurrence: None)
  Receive Date: 20090126
  Receipt Date: 20090126
  Transmission Date: 20090719
  Serious: Yes (Life-Threatening, Hospitalization)
  Sender: FDA-Public Use
  Company Number: None

PATIENT
  Age: 55 Year
  Sex: Male
  Weight: 108.8633 kg

DRUGS (2)
  1. VOLTAREN [Suspect]
     Indication: ANTIINFLAMMATORY THERAPY
     Dosage: ONE TABLET TWICE/DAILY PO
     Route: 048
     Dates: start: 20081002, end: 20081122
  2. SKELAXIN [Suspect]
     Indication: MUSCLE RELAXANT THERAPY
     Dosage: ONE CAPSULE THREE/DAILY PO
     Route: 048
     Dates: start: 20081002, end: 20081122

REACTIONS (7)
  - ABNORMAL BEHAVIOUR [None]
  - ANORECTAL DISCOMFORT [None]
  - ASTHENIA [None]
  - CHILLS [None]
  - PYREXIA [None]
  - SLUGGISHNESS [None]
  - WHITE BLOOD CELL COUNT DECREASED [None]
